FAERS Safety Report 17666077 (Version 1)
Quarter: 2020Q2

REPORT INFORMATION
  Report Type: Spontaneous
  Country: DE (occurrence: DE)
  Receive Date: 20200414
  Receipt Date: 20200414
  Transmission Date: 20200713
  Serious: Yes (Life-Threatening, Hospitalization, Other)
  Sender: FDA-Public Use
  Company Number: NVSC2020DE099362

PATIENT
  Age: 33 Year
  Weight: 53 kg

DRUGS (3)
  1. PARACETAMOL [Suspect]
     Active Substance: ACETAMINOPHEN
     Indication: PRODUCT USED FOR UNKNOWN INDICATION
     Dosage: 500 MG
     Route: 048
  2. NOVALGIN (METAMIZOLE SODIUM) [Suspect]
     Active Substance: METAMIZOLE SODIUM
     Indication: PRODUCT USED FOR UNKNOWN INDICATION
     Dosage: THE REPORTED DOSE WAS ONE HAND FULL OF TABLETS, MOST OF IT PCM-500. THE REPORTED DRUGS ARE:WICK DAYM
     Route: 048
  3. WICK DAYMED (ACETAMINOPHEN\DEXTROMETHORPHAN HYDROBROMIDE\PHENYLPROPANOLAMINE HYDROCHLORIDE) [Suspect]
     Active Substance: ACETAMINOPHEN\DEXTROMETHORPHAN HYDROBROMIDE\PHENYLPROPANOLAMINE HYDROCHLORIDE
     Indication: PRODUCT USED FOR UNKNOWN INDICATION
     Dosage: 325 MG, 12,5 MG, 10 MG
     Route: 065

REACTIONS (3)
  - Fatigue [Unknown]
  - Suicide attempt [Unknown]
  - Drug abuse [Unknown]
